FAERS Safety Report 5719766-3 (Version None)
Quarter: 2008Q2

REPORT INFORMATION
  Report Type: 
  Country: None (occurrence: None)
  Receive Date: 20080428
  Receipt Date: 20070426
  Transmission Date: 20081010
  Serious: No
  Sender: FDA-Public Use
  Company Number: A0648866A

PATIENT
  Age: 25 Year
  Sex: Female

DRUGS (1)
  1. ONDANSETRON [Suspect]
     Indication: HYPEREMESIS GRAVIDARUM
     Dosage: 5ML SINGLE DOSE
     Route: 042
     Dates: start: 20070424, end: 20070424

REACTIONS (3)
  - DRUG EXPOSURE DURING PREGNANCY [None]
  - INCORRECT ROUTE OF DRUG ADMINISTRATION [None]
  - NO ADVERSE EVENT [None]
